FAERS Safety Report 14516075 (Version 1)
Quarter: 2018Q1

REPORT INFORMATION
  Report Type: Spontaneous
  Country: US (occurrence: US)
  Receive Date: 20180211
  Receipt Date: 20180211
  Transmission Date: 20180509
  Serious: No
  Sender: FDA-Public Use
  Company Number: US-TEVA-2018-US-859060

PATIENT

DRUGS (1)
  1. AUSTEDO [Suspect]
     Active Substance: DEUTETRABENAZINE
     Route: 065

REACTIONS (5)
  - Skin wrinkling [Unknown]
  - Self esteem decreased [Unknown]
  - Insomnia [Unknown]
  - Feeling abnormal [Unknown]
  - Movement disorder [Unknown]
